FAERS Safety Report 4880414-6 (Version None)
Quarter: 2005Q4

REPORT INFORMATION
  Report Type: 
  Country: None (occurrence: None)
  Receive Date: 20051223
  Receipt Date: 20051102
  Transmission Date: 20060501
  Serious: No
  Sender: FDA-Public Use
  Company Number: 05P-163-0304028-00

PATIENT
  Age: 68 Year
  Sex: Female
  Weight: 90.7194 kg

DRUGS (5)
  1. HUMIRA [Suspect]
     Indication: RHEUMATOID ARTHRITIS
     Dosage: 40 MG, 1 IN 1 WK, SUBCUTANEOUS
     Route: 058
     Dates: start: 20050101, end: 20051028
  2. IBUPROFEN [Concomitant]
  3. THYROID TAB [Concomitant]
  4. CYCLOBENZAPRINE HCL [Concomitant]
  5. RANITIDINE HYDROCHLORIDE [Concomitant]

REACTIONS (6)
  - BLISTER [None]
  - CELLULITIS [None]
  - ERYTHEMA [None]
  - OEDEMA PERIPHERAL [None]
  - SKIN INFECTION [None]
  - VASCULITIS [None]
